FAERS Safety Report 8927675 (Version 2)
Quarter: 2012Q4

REPORT INFORMATION
  Report Type: Report from Study
  Country: US (occurrence: US)
  Receive Date: 20121127
  Receipt Date: 20121231
  Transmission Date: 20130627
  Serious: Yes (Death)
  Sender: FDA-Public Use
  Company Number: US-ROCHE-1157240

PATIENT
  Age: 63 Year
  Sex: Female

DRUGS (12)
  1. CAPECITABINE [Suspect]
     Indication: NEOPLASM MALIGNANT
     Route: 065
     Dates: start: 20100203, end: 20100215
  2. TAXOL [Concomitant]
     Route: 065
     Dates: start: 20070810
  3. FEMARA [Concomitant]
     Route: 065
     Dates: start: 20071120, end: 20090408
  4. AROMASIN [Concomitant]
     Route: 065
     Dates: start: 20090507
  5. AMARYL [Concomitant]
  6. ZOCOR [Concomitant]
     Route: 065
  7. DIOVAN [Concomitant]
     Dosage: 325/60 mg daily
     Route: 065
  8. ASPIRIN [Concomitant]
     Route: 065
  9. FLAXSEED [Concomitant]
  10. FISH OIL [Concomitant]
  11. DARVOCET [Concomitant]
     Indication: PAIN
     Route: 065
  12. ACYCLOVIR OINTMENT [Concomitant]
     Route: 061
     Dates: start: 20090222

REACTIONS (4)
  - Death [Fatal]
  - Dihydropyrimidine dehydrogenase deficiency [Recovered/Resolved]
  - Diarrhoea [Recovered/Resolved]
  - Mucosal inflammation [Recovered/Resolved]
